FAERS Safety Report 11983458 (Version 3)
Quarter: 2018Q1

REPORT INFORMATION
  Report Type: Other
  Country: JP (occurrence: JP)
  Receive Date: 20160201
  Receipt Date: 20180116
  Transmission Date: 20180508
  Serious: Yes (Disabling, Other)
  Sender: FDA-Public Use
  Company Number: JP-OTSUKA-2016_002213AA

PATIENT
  Age: 71 Year
  Sex: Male

DRUGS (1)
  1. PLETAAL OD TABLETS 50MG [Suspect]
     Active Substance: CILOSTAZOL
     Indication: PRODUCT USED FOR UNKNOWN INDICATION
     Dosage: 50 MG, DAILY DOSE
     Route: 048
     Dates: start: 201407, end: 201407

REACTIONS (3)
  - Cerebral infarction [Unknown]
  - Small intestinal haemorrhage [Unknown]
  - Disability [Unknown]
